FAERS Safety Report 8345680-3 (Version None)
Quarter: 2012Q2

REPORT INFORMATION
  Report Type: 
  Country: None (occurrence: None)
  Receive Date: 20120508
  Receipt Date: 20120502
  Transmission Date: 20120825
  Serious: Yes (Life-Threatening, Hospitalization, Disabling, Other)
  Sender: FDA-Public Use
  Company Number: FR-ELI_LILLY_AND_COMPANY-FR201203007202

PATIENT
  Sex: Male
  Weight: 85 kg

DRUGS (7)
  1. EFFIENT [Suspect]
     Indication: STENT PLACEMENT
     Dosage: 10 MG, QD
     Route: 048
     Dates: start: 20120101, end: 20120210
  2. RAMIPRIL [Concomitant]
     Dosage: 2.5 MG, UNK
  3. ARESTAL [Concomitant]
     Dosage: 1 MG, PRN
     Dates: end: 20120210
  4. ASPIRIN [Concomitant]
     Indication: STENT PLACEMENT
     Dosage: 75 MG, QD
     Dates: start: 20120110, end: 20120210
  5. BISOPROLOL FUMARATE [Concomitant]
     Dosage: 5 MG, UNK
  6. COUMADIN [Concomitant]
     Indication: THROMBOSIS
     Dosage: 5 MG, QD
     Dates: start: 20120119, end: 20120210
  7. ATORVASTATIN [Concomitant]
     Dosage: 80 MG, QD
     Dates: end: 20120210

REACTIONS (16)
  - LUNG DISORDER [None]
  - ACIDOSIS HYPERCHLORAEMIC [None]
  - CEREBRAL HAEMATOMA [None]
  - ABNORMAL BEHAVIOUR [None]
  - INCONTINENCE [None]
  - BALANCE DISORDER [None]
  - PNEUMONIA STAPHYLOCOCCAL [None]
  - FALL [None]
  - CONFUSIONAL STATE [None]
  - MOTOR DYSFUNCTION [None]
  - HEMIPARESIS [None]
  - BLOOD PRESSURE SYSTOLIC INCREASED [None]
  - DISORIENTATION [None]
  - APRAXIA [None]
  - HAEMORRHAGE INTRACRANIAL [None]
  - APHASIA [None]
